FAERS Safety Report 5208533-5 (Version None)
Quarter: 2007Q1

REPORT INFORMATION
  Report Type: 
  Country: None (occurrence: None)
  Receive Date: 20070115
  Receipt Date: 20070111
  Transmission Date: 20070707
  Serious: Yes (Other)
  Sender: FDA-Public Use
  Company Number: GR-BOEHRINGER INGELHEIM PHARMACEUTICALS, INC.-2007-DE-00206GD

PATIENT
  Age: 68 Year
  Sex: Male

DRUGS (6)
  1. MEXILETINE HYDROCHLORIDE [Suspect]
     Indication: VENTRICULAR TACHYCARDIA
  2. LIDOCAINE [Suspect]
     Indication: VENTRICULAR TACHYCARDIA
  3. CARVEDILOL [Suspect]
     Indication: VENTRICULAR TACHYCARDIA
  4. ESMOLOL HCL [Suspect]
     Indication: VENTRICULAR TACHYCARDIA
  5. AMIODARONE HCL [Suspect]
     Indication: VENTRICULAR TACHYCARDIA
  6. PROCAINAMIDE [Suspect]
     Indication: VENTRICULAR TACHYCARDIA

REACTIONS (1)
  - DRUG INEFFECTIVE [None]
